FAERS Safety Report 9166616 (Version 2)
Quarter: 2013Q2

REPORT INFORMATION
  Report Type: Spontaneous
  Country: US (occurrence: US)
  Receive Date: 20130315
  Receipt Date: 20130506
  Transmission Date: 20140414
  Serious: Yes (Other)
  Sender: FDA-Public Use
  Company Number: US-AMGEN-USASP2013017441

PATIENT
  Age: 74 Year
  Sex: Female
  Weight: 126.9 kg

DRUGS (12)
  1. PROCRIT [Suspect]
     Indication: HAEMOGLOBIN DECREASED
     Dosage: UNK
     Route: 058
     Dates: start: 20130102
  2. PROCRIT [Suspect]
     Indication: RENAL FAILURE CHRONIC
  3. FERAHEME [Concomitant]
     Indication: HAEMOGLOBIN DECREASED
     Dosage: UNK
     Route: 042
     Dates: start: 20130128
  4. LASIX                              /00032601/ [Concomitant]
     Indication: HYPERTENSION
     Dosage: UNK
  5. IMDUR [Concomitant]
     Indication: HYPERTENSION
     Dosage: UNK
  6. EDARBI [Concomitant]
     Indication: HYPERTENSION
     Dosage: UNK
  7. CELEXA                             /00582602/ [Concomitant]
     Indication: ANXIETY
     Dosage: UNK
  8. COREG [Concomitant]
     Indication: HYPERTENSION
     Dosage: UNK
  9. WARFARIN [Concomitant]
     Indication: THROMBOSIS
     Dosage: UNK
  10. VITAMIN D /00107901/ [Concomitant]
     Dosage: UNK
  11. MULTIVITAMINS [Concomitant]
     Dosage: UNK
  12. MELATONIN [Concomitant]
     Dosage: UNK

REACTIONS (5)
  - Breast necrosis [Not Recovered/Not Resolved]
  - Breast pain [Not Recovered/Not Resolved]
  - Breast tenderness [Not Recovered/Not Resolved]
  - Breast swelling [Not Recovered/Not Resolved]
  - Haemoglobin decreased [Recovering/Resolving]
